FAERS Safety Report 13533435 (Version 1)
Quarter: 2017Q2

REPORT INFORMATION
  Report Type: Spontaneous
  Country: US (occurrence: US)
  Receive Date: 20170510
  Receipt Date: 20170510
  Transmission Date: 20170830
  Serious: No
  Sender: FDA-Public Use
  Company Number: US-ACTELION-A-NJ2016-146837

PATIENT
  Age: 34 Year
  Sex: Female

DRUGS (13)
  1. REMODULIN [Suspect]
     Active Substance: TREPROSTINIL
     Indication: PRODUCT USED FOR UNKNOWN INDICATION
     Dosage: 35 NG/KG, CONT INFUS
     Route: 042
     Dates: start: 201606
  2. ADCIRCA [Concomitant]
     Active Substance: TADALAFIL
     Dosage: 40 MG, QD
     Dates: start: 20160913
  3. LYRICA [Concomitant]
     Active Substance: PREGABALIN
  4. PROZAC [Concomitant]
     Active Substance: FLUOXETINE HYDROCHLORIDE
  5. MELATONIN [Concomitant]
     Active Substance: MELATONIN
  6. REMODULIN [Suspect]
     Active Substance: TREPROSTINIL
     Dosage: 51 NG/KG, PER MIN
     Route: 042
  7. XARELTO [Concomitant]
     Active Substance: RIVAROXABAN
  8. SEROQUEL [Concomitant]
     Active Substance: QUETIAPINE FUMARATE
  9. LASIX [Concomitant]
     Active Substance: FUROSEMIDE
  10. ATIVAN [Concomitant]
     Active Substance: LORAZEPAM
  11. OPSUMIT [Suspect]
     Active Substance: MACITENTAN
     Indication: PULMONARY ARTERIAL HYPERTENSION
     Dosage: 10 MG, QD
     Route: 048
     Dates: start: 20150412
  12. HALDOL [Concomitant]
     Active Substance: HALOPERIDOL
  13. TRAMADOL. [Concomitant]
     Active Substance: TRAMADOL

REACTIONS (4)
  - Incorrect drug administration rate [Unknown]
  - Chest pain [Not Recovered/Not Resolved]
  - Blood pressure decreased [Recovered/Resolved]
  - Lung disorder [Unknown]

NARRATIVE: CASE EVENT DATE: 20161207
